FAERS Safety Report 20239564 (Version 2)
Quarter: 2022Q2

REPORT INFORMATION
  Report Type: Other
  Country: DE (occurrence: None)
  Receive Date: 20211228
  Receipt Date: 20220405
  Transmission Date: 20220720
  Serious: No
  Sender: FDA-Public Use
  Company Number: DE-ROCHE-2951601

PATIENT
  Age: 32 Year
  Sex: Female
  Weight: 56.8 kg

DRUGS (4)
  1. OCRELIZUMAB [Suspect]
     Active Substance: OCRELIZUMAB
     Indication: Multiple sclerosis
     Dosage: SUBSEQUENT DOSE RECEIVED ON 09/AUG/2021, 300 MG
     Route: 065
     Dates: start: 20200604, end: 20200604
  2. MAGNESIUM [Concomitant]
     Active Substance: MAGNESIUM
     Dates: start: 20201018, end: 20210415
  3. CLOTRIMAZOLE [Concomitant]
     Active Substance: CLOTRIMAZOLE
     Dates: start: 20210203, end: 20210205
  4. FERROUS SULFATE [Concomitant]
     Active Substance: FERROUS SULFATE
     Dates: start: 20210302, end: 20210428

REACTIONS (1)
  - Maternal exposure during pregnancy [Unknown]
